FAERS Safety Report 8235454-6 (Version None)
Quarter: 2012Q1

REPORT INFORMATION
  Report Type: 
  Country: None (occurrence: None)
  Receive Date: 20120326
  Receipt Date: 20120314
  Transmission Date: 20120608
  Serious: Yes (Other)
  Sender: FDA-Public Use
  Company Number: PHHY2012JP020445

PATIENT
  Age: 10 Year
  Sex: Male

DRUGS (5)
  1. METHOTREXATE [Suspect]
     Indication: PROPHYLAXIS AGAINST GRAFT VERSUS HOST DISEASE
     Dosage: UNK UKN, UNK
  2. CYCLOPHOSPHAMIDE [Concomitant]
     Dosage: UNK UKN, UNK
  3. IRRADIATION [Concomitant]
     Dosage: 12 GY, UNK
  4. CYTARABINE [Concomitant]
     Dosage: UNK UKN, UNK
  5. CYCLOSPORINE [Suspect]
     Indication: PROPHYLAXIS AGAINST GRAFT VERSUS HOST DISEASE
     Dosage: UNK UKN, UNK
     Route: 065

REACTIONS (10)
  - WEIGHT DECREASED [None]
  - ACUTE GRAFT VERSUS HOST DISEASE IN SKIN [None]
  - ACUTE GRAFT VERSUS HOST DISEASE IN INTESTINE [None]
  - DYSPHAGIA [None]
  - SQUAMOUS CELL CARCINOMA [None]
  - SENSATION OF FOREIGN BODY [None]
  - CHRONIC GRAFT VERSUS HOST DISEASE [None]
  - METASTASES TO LUNG [None]
  - METASTASES TO LYMPH NODES [None]
  - OESOPHAGEAL CARCINOMA [None]
